FAERS Safety Report 10550729 (Version 1)
Quarter: 2014Q4

REPORT INFORMATION
  Report Type: Spontaneous
  Country: US (occurrence: None)
  Receive Date: 20141028
  Receipt Date: 20141028
  Transmission Date: 20150529
  Serious: No
  Sender: FDA-Public Use
  Company Number: None

PATIENT
  Age: 49 Year
  Sex: Female
  Weight: 70.31 kg

DRUGS (4)
  1. DULOXETINE [Suspect]
     Active Substance: DULOXETINE
     Indication: PAIN
     Route: 048
     Dates: start: 20140923
  2. MULTI VITAMIN [Concomitant]
     Active Substance: VITAMINS
  3. DULOXETINE [Suspect]
     Active Substance: DULOXETINE
     Indication: FIBROMYALGIA
     Route: 048
     Dates: start: 20140923
  4. VITAMIN D [Concomitant]
     Active Substance: CHOLECALCIFEROL

REACTIONS (6)
  - Euphoric mood [None]
  - Night sweats [None]
  - Dizziness [None]
  - Hyperhidrosis [None]
  - Nausea [None]
  - Headache [None]

NARRATIVE: CASE EVENT DATE: 20140923
